FAERS Safety Report 8043719-6 (Version None)
Quarter: 2012Q1

REPORT INFORMATION
  Report Type: 
  Country: None (occurrence: None)
  Receive Date: 20120113
  Receipt Date: 20120106
  Transmission Date: 20120608
  Serious: Yes (Hospitalization, Other)
  Sender: FDA-Public Use
  Company Number: US-BRISTOL-MYERS SQUIBB COMPANY-16076382

PATIENT
  Age: 46 Year
  Sex: Female
  Weight: 85 kg

DRUGS (2)
  1. DECADRON [Suspect]
  2. IPILIMUMAB [Suspect]
     Indication: MALIGNANT MELANOMA
     Dosage: LAST DOSE ON 07SEP11 858MG, 860MG COURSE 4
     Route: 042
     Dates: start: 20110629, end: 20110907

REACTIONS (4)
  - HYPOPHYSITIS [None]
  - OPTIC NERVE DISORDER [None]
  - HYPONATRAEMIA [None]
  - ADRENAL INSUFFICIENCY [None]
